FAERS Safety Report 6982123-6 (Version None)
Quarter: 2010Q3

REPORT INFORMATION
  Report Type: 
  Country: None (occurrence: None)
  Receive Date: 20100914
  Receipt Date: 20091202
  Transmission Date: 20110219
  Serious: No
  Sender: FDA-Public Use
  Company Number: US-PFIZER INC-2009305730

PATIENT
  Sex: Male
  Weight: 91.625 kg

DRUGS (15)
  1. LYRICA [Suspect]
     Indication: NEUROPATHY PERIPHERAL
     Dosage: 150 MG, 2X/DAY
  2. LOPID [Concomitant]
     Dosage: 600 MG, 2X/DAY
  3. TOPROL-XL [Concomitant]
     Dosage: 50 MG, 1X/DAY
  4. ASPIRIN [Concomitant]
     Dosage: UNK
  5. OMEPRAZOLE [Concomitant]
     Dosage: 20 MG, UNK
  6. ZOLOFT [Concomitant]
     Dosage: UNK
  7. LASIX [Concomitant]
     Dosage: UNK
  8. POTASSIUM CHLORIDE [Concomitant]
     Dosage: 10 MEQ, UNK
  9. KLONOPIN [Concomitant]
     Dosage: UNK
  10. PRAVACHOL [Concomitant]
     Dosage: UNK
  11. METFORMIN HYDROCHLORIDE [Concomitant]
     Dosage: UNK
  12. MOBIC [Concomitant]
     Dosage: UNK
  13. FLONASE [Concomitant]
     Dosage: UNK
  14. TYLENOL (CAPLET) [Concomitant]
     Dosage: 1300 MG, 1X/DAY
  15. NITROGLYCERIN [Concomitant]
     Indication: ARTERIAL OCCLUSIVE DISEASE
     Dosage: FREQUENCY: AS NEEDED,
     Dates: start: 19890101

REACTIONS (4)
  - DYSPNOEA [None]
  - MEMORY IMPAIRMENT [None]
  - SPINAL DISORDER [None]
  - TOTAL LUNG CAPACITY DECREASED [None]
